FAERS Safety Report 10210416 (Version 1)
Quarter: 2014Q2

REPORT INFORMATION
  Report Type: Spontaneous
  Country: US (occurrence: None)
  Receive Date: 20140529
  Receipt Date: 20140529
  Transmission Date: 20141212
  Serious: Yes (Hospitalization)
  Sender: FDA-Public Use
  Company Number: None

PATIENT
  Age: 58 Year
  Sex: Male

DRUGS (1)
  1. ENBREL [Suspect]
     Indication: ANKYLOSING SPONDYLITIS
     Dosage: 50 MG ONCE A WEEK SUBCUTANEOUS
     Route: 058
     Dates: start: 20140408, end: 20140528

REACTIONS (4)
  - Nausea [None]
  - Rash [None]
  - Pneumonia [None]
  - Dyspnoea [None]
